FAERS Safety Report 16546963 (Version 2)
Quarter: 2019Q3

REPORT INFORMATION
  Report Type: Spontaneous
  Country: US (occurrence: US)
  Receive Date: 20190709
  Receipt Date: 20190831
  Transmission Date: 20191004
  Serious: Yes (Life-Threatening)
  Sender: FDA-Public Use
  Company Number: PHEH2019US028515

PATIENT
  Age: 3 Day
  Sex: Male
  Weight: 3.4 kg

DRUGS (1)
  1. AMPICILLIN FOR INJECTION, USP [Suspect]
     Active Substance: AMPICILLIN
     Indication: SEPSIS NEONATAL
     Dosage: 342 MG, Q12H
     Route: 042
     Dates: start: 20190616, end: 20190619

REACTIONS (3)
  - Respiratory distress [Unknown]
  - Pallor [Unknown]
  - Bradycardia neonatal [Recovered/Resolved]

NARRATIVE: CASE EVENT DATE: 20190619
